FAERS Safety Report 8232085-9 (Version None)
Quarter: 2012Q1

REPORT INFORMATION
  Report Type: 
  Country: None (occurrence: None)
  Receive Date: 20120323
  Receipt Date: 20120322
  Transmission Date: 20120608
  Serious: No
  Sender: FDA-Public Use
  Company Number: US-BAYER-2012-028485

PATIENT
  Sex: Female
  Weight: 94.785 kg

DRUGS (3)
  1. ULTRAVIST 150 [Suspect]
     Indication: COMPUTERISED TOMOGRAM
     Dosage: 50 ML, ONCE
     Route: 042
     Dates: start: 20120309
  2. METHYLPREDNISOLONE [Concomitant]
     Indication: PREMEDICATION
     Dosage: 32 MG, ONCE
     Route: 048
  3. BENADRYL [Concomitant]
     Indication: PREMEDICATION
     Dosage: 50 MG, ONCE
     Route: 048

REACTIONS (2)
  - URTICARIA [None]
  - PRURITUS [None]
